FAERS Safety Report 20429555 (Version 8)
Quarter: 2024Q4

REPORT INFORMATION
  Report Type: Report from Study
  Country: CA (occurrence: CA)
  Receive Date: 20220204
  Receipt Date: 20241125
  Transmission Date: 20250114
  Serious: Yes (Other)
  Sender: JOHNSON AND JOHNSON
  Company Number: CA-JNJFOC-20220200527

PATIENT
  Age: 9 Year
  Sex: Female
  Weight: 24.9 kg

DRUGS (7)
  1. REMICADE [Suspect]
     Active Substance: INFLIXIMAB
     Indication: Colitis ulcerative
     Dosage: LAST DOSE 200MG RECEIVED 17-DEC-2021
     Route: 041
     Dates: start: 20211113
  2. REMICADE [Suspect]
     Active Substance: INFLIXIMAB
     Route: 041
  3. REMICADE [Suspect]
     Active Substance: INFLIXIMAB
     Route: 041
     Dates: start: 20220128
  4. REMICADE [Suspect]
     Active Substance: INFLIXIMAB
     Route: 041
     Dates: end: 20230210
  5. REMICADE [Suspect]
     Active Substance: INFLIXIMAB
     Dosage: WEEKS 0-4, THEN EVERY 4 WEEKS
     Route: 041
     Dates: start: 20231127
  6. REMICADE [Suspect]
     Active Substance: INFLIXIMAB
     Dosage: 350 MG I.V. WEEKS 0-2-6 THEN RESUME 350 MG I.V. Q. 4 WEEKS
     Route: 041
     Dates: start: 20211113
  7. REMICADE [Suspect]
     Active Substance: INFLIXIMAB
     Route: 041

REACTIONS (3)
  - Colitis ulcerative [Not Recovered/Not Resolved]
  - Off label use [Unknown]
  - Treatment noncompliance [Unknown]

NARRATIVE: CASE EVENT DATE: 20220128
